FAERS Safety Report 8126216-9 (Version None)
Quarter: 2012Q1

REPORT INFORMATION
  Report Type: 
  Country: None (occurrence: None)
  Receive Date: 20120209
  Receipt Date: 20120206
  Transmission Date: 20120608
  Serious: Yes (Other)
  Sender: FDA-Public Use
  Company Number: PHHY2012GB010270

PATIENT
  Age: 54 Year
  Sex: Female

DRUGS (2)
  1. ZOLEDRONIC ACID [Suspect]
  2. CHEMOTHERAPEUTICS NOS [Concomitant]

REACTIONS (6)
  - PAIN [None]
  - ORAL DISORDER [None]
  - GINGIVAL EROSION [None]
  - MUCOSAL INFLAMMATION [None]
  - OSTEONECROSIS OF JAW [None]
  - ORAL PAIN [None]
